FAERS Safety Report 7038569-3 (Version None)
Quarter: 2010Q4

REPORT INFORMATION
  Report Type: 
  Country: None (occurrence: None)
  Receive Date: 20101011
  Receipt Date: 20100715
  Transmission Date: 20110411
  Serious: Yes (Hospitalization, Other)
  Sender: FDA-Public Use
  Company Number: US-PFIZER INC-2010089153

PATIENT
  Age: 72 Year
  Sex: Female
  Weight: 63.492 kg

DRUGS (4)
  1. NEURONTIN [Suspect]
     Indication: BACK PAIN
     Dosage: 600 MG, 3X/DAY
     Route: 048
     Dates: start: 20050101
  2. KADIAN [Suspect]
     Indication: BACK PAIN
     Dosage: 15 MG, 2X/DAY
     Route: 048
     Dates: start: 20050101
  3. KADIAN [Suspect]
     Dosage: 60 MG, 2X/DAY
     Route: 048
  4. MORPHINE SULFATE [Suspect]
     Indication: BACK PAIN
     Dosage: 30 MG, 2-3 TIMES PER WEEK
     Route: 048
     Dates: start: 20050101

REACTIONS (1)
  - PNEUMONIA ASPIRATION [None]
